FAERS Safety Report 26018789 (Version 3)
Quarter: 2025Q4

REPORT INFORMATION
  Report Type: Spontaneous
  Country: RU (occurrence: RU)
  Receive Date: 20251110
  Receipt Date: 20251208
  Transmission Date: 20260117
  Serious: Yes (Death, Hospitalization, Other)
  Sender: JOHNSON AND JOHNSON
  Company Number: RU-JNJFOC-20251039112

PATIENT
  Age: 64 Year
  Sex: Female
  Weight: 80 kg

DRUGS (3)
  1. STELARA [Suspect]
     Active Substance: USTEKINUMAB
     Indication: Crohn^s disease
     Route: 040
  2. STELARA [Suspect]
     Active Substance: USTEKINUMAB
     Indication: Crohn^s disease
     Route: 058
     Dates: start: 20250904
  3. VITAMIN B12 [Suspect]
     Active Substance: CYANOCOBALAMIN
     Indication: Spinal pain

REACTIONS (7)
  - Toxic epidermal necrolysis [Fatal]
  - Sepsis [Fatal]
  - Anaemia [Fatal]
  - Multiple organ dysfunction syndrome [Fatal]
  - Brain oedema [Fatal]
  - Resuscitation [Fatal]
  - Spinal fracture [Unknown]

NARRATIVE: CASE EVENT DATE: 20250721
